FAERS Safety Report 6182302-4 (Version None)
Quarter: 2009Q2

REPORT INFORMATION
  Report Type: 
  Country: None (occurrence: None)
  Receive Date: 20090505
  Receipt Date: 20090505
  Transmission Date: 20091009
  Serious: No
  Sender: FDA-Public Use
  Company Number: None

PATIENT
  Age: 60 Year
  Sex: Male
  Weight: 86.1834 kg

DRUGS (1)
  1. AMBIEN 10MG SANOFP AVENTIS [Suspect]
     Indication: INSOMNIA
     Dosage: 10MG QD PO
     Route: 048
     Dates: start: 20070714, end: 20090503

REACTIONS (2)
  - AMNESIA [None]
  - MIDDLE INSOMNIA [None]
